FAERS Safety Report 19999784 (Version 1)
Quarter: 2021Q4

REPORT INFORMATION
  Report Type: Spontaneous
  Country: US (occurrence: US)
  Receive Date: 20211027
  Receipt Date: 20211027
  Transmission Date: 20220304
  Serious: Yes (Other)
  Sender: FDA-Public Use
  Company Number: US-CIPLA LTD.-2021US07047

PATIENT

DRUGS (2)
  1. RITONAVIR [Interacting]
     Active Substance: RITONAVIR
     Indication: HIV infection
     Dosage: UNK
     Route: 065
  2. FLUTICASONE [Interacting]
     Active Substance: FLUTICASONE
     Indication: Sinusitis
     Dosage: UNK
     Route: 065

REACTIONS (3)
  - Osteonecrosis [Unknown]
  - Cushing^s syndrome [Unknown]
  - Labelled drug-drug interaction issue [Unknown]
